FAERS Safety Report 20845583 (Version 2)
Quarter: 2022Q3

REPORT INFORMATION
  Report Type: Spontaneous
  Country: US (occurrence: US)
  Receive Date: 20220518
  Receipt Date: 20220810
  Transmission Date: 20221027
  Serious: No
  Sender: FDA-Public Use
  Company Number: US-PFIZER INC-202200591119

PATIENT
  Age: 69 Year
  Sex: Female
  Weight: 63.05 kg

DRUGS (2)
  1. CYTOMEL [Suspect]
     Active Substance: LIOTHYRONINE SODIUM
     Indication: Goitre
     Dosage: 5 MG, 1X/DAY
     Route: 048
  2. CYTOMEL [Suspect]
     Active Substance: LIOTHYRONINE SODIUM
     Indication: Thyroidectomy

REACTIONS (2)
  - Therapeutic response unexpected [Unknown]
  - Pre-existing condition improved [Unknown]
